FAERS Safety Report 7571515-2 (Version None)
Quarter: 2011Q2

REPORT INFORMATION
  Report Type: 
  Country: None (occurrence: None)
  Receive Date: 20110624
  Receipt Date: 20110610
  Transmission Date: 20111010
  Serious: Yes (Hospitalization)
  Sender: FDA-Public Use
  Company Number: US-JNJFOC-20110605689

PATIENT
  Sex: Male
  Weight: 80.74 kg

DRUGS (3)
  1. HYDROCODONE [Concomitant]
     Indication: PAIN
     Dosage: 10-500 MG
     Route: 048
  2. REMICADE [Suspect]
     Indication: COLITIS ULCERATIVE
     Route: 042
     Dates: start: 20101201
  3. AZATHIOPRINE [Concomitant]
     Indication: COLITIS
     Route: 048
     Dates: start: 20080101

REACTIONS (5)
  - TONGUE ULCERATION [None]
  - RASH [None]
  - COLITIS ULCERATIVE [None]
  - DRUG INEFFECTIVE [None]
  - DRY SKIN [None]
